FAERS Safety Report 21662560 (Version 1)
Quarter: 2022Q4

REPORT INFORMATION
  Report Type: Spontaneous
  Country: CN (occurrence: CN)
  Receive Date: 20221130
  Receipt Date: 20221130
  Transmission Date: 20230113
  Serious: Yes (Hospitalization, Other)
  Sender: FDA-Public Use
  Company Number: None

PATIENT
  Age: 43 Year
  Sex: Female
  Weight: 55 kg

DRUGS (5)
  1. MESNA [Suspect]
     Active Substance: MESNA
     Indication: Fibrosarcoma
     Dosage: 400 MG, THREE TIMES A DAY
     Route: 042
     Dates: start: 20220515, end: 20220516
  2. CYCLOPHOSPHAMIDE [Suspect]
     Active Substance: CYCLOPHOSPHAMIDE
     Indication: Fibrosarcoma
     Dosage: 2 G, QD, D3-4
     Route: 042
     Dates: start: 20220515, end: 20220516
  3. IFOSFAMIDE [Suspect]
     Active Substance: IFOSFAMIDE
     Indication: Fibrosarcoma
     Dosage: 2 G, QD
     Route: 042
     Dates: start: 20220515, end: 20220516
  4. EPIRUBICIN HYDROCHLORIDE [Suspect]
     Active Substance: EPIRUBICIN HYDROCHLORIDE
     Indication: Fibrosarcoma
     Dosage: 60 MG, QD
     Route: 042
     Dates: start: 20220513, end: 20220514
  5. CISPLATIN [Suspect]
     Active Substance: CISPLATIN
     Indication: Fibrosarcoma
     Dosage: 40 MG, QD
     Route: 042
     Dates: start: 20220513, end: 20220515

REACTIONS (1)
  - Myelosuppression [Recovering/Resolving]

NARRATIVE: CASE EVENT DATE: 20220523
